FAERS Safety Report 6834947-3 (Version None)
Quarter: 2010Q3

REPORT INFORMATION
  Report Type: 
  Country: None (occurrence: None)
  Receive Date: 20100712
  Receipt Date: 20070530
  Transmission Date: 20110219
  Serious: No
  Sender: FDA-Public Use
  Company Number: US-PFIZER INC-2007034361

PATIENT
  Age: 40 Year
  Sex: Male
  Weight: 84.09 kg

DRUGS (4)
  1. CHANTIX [Suspect]
     Indication: SMOKING CESSATION THERAPY
     Dates: start: 20070411
  2. ALBUTEROL [Concomitant]
  3. PRIMATENE MIST [Concomitant]
  4. IBUPROFEN [Concomitant]

REACTIONS (4)
  - ARTHRALGIA [None]
  - JOINT STIFFNESS [None]
  - PAIN [None]
  - PAIN IN EXTREMITY [None]
